FAERS Safety Report 23136225 (Version 3)
Quarter: 2024Q2

REPORT INFORMATION
  Report Type: Report from Study
  Country: US (occurrence: US)
  Receive Date: 20231102
  Receipt Date: 20240510
  Transmission Date: 20240716
  Serious: No
  Sender: FDA-Public Use
  Company Number: US-ACADIA PHARMACEUTICALS INC.-ACA-2023-TRF-004626

PATIENT
  Sex: Female

DRUGS (4)
  1. DAYBUE [Suspect]
     Active Substance: TROFINETIDE
     Dosage: ON LOW DOSE
     Route: 065
  2. DAYBUE [Suspect]
     Active Substance: TROFINETIDE
     Dosage: DOSE WENT UP
     Route: 065
  3. DAYBUE [Suspect]
     Active Substance: TROFINETIDE
     Dosage: 50 MILLILITER
     Route: 065
  4. DAYBUE [Suspect]
     Active Substance: TROFINETIDE
     Dosage: 37.5 MILLILITER
     Route: 065

REACTIONS (11)
  - Weight decreased [Unknown]
  - Eructation [Unknown]
  - Therapeutic product effect delayed [Unknown]
  - Retching [Unknown]
  - Product use complaint [Unknown]
  - Rhinorrhoea [Not Recovered/Not Resolved]
  - Diarrhoea [Not Recovered/Not Resolved]
  - Anxiety [Recovering/Resolving]
  - Vomiting [Unknown]
  - Diarrhoea [Unknown]
  - Diarrhoea [Unknown]
